FAERS Safety Report 22950602 (Version 2)
Quarter: 2023Q4

REPORT INFORMATION
  Report Type: Spontaneous
  Country: GB (occurrence: GB)
  Receive Date: 20230915
  Receipt Date: 20231021
  Transmission Date: 20240109
  Serious: Yes (Other)
  Sender: FDA-Public Use
  Company Number: GB-GRUNENTHAL-2023-272130

PATIENT
  Age: 38 Year
  Sex: Female

DRUGS (13)
  1. TRAMADOL HYDROCHLORIDE [Suspect]
     Active Substance: TRAMADOL HYDROCHLORIDE
     Indication: Product used for unknown indication
     Dosage: UNK
     Route: 065
  2. LIDOCAINE HYDROCHLORIDE [Suspect]
     Active Substance: DEXTROSE MONOHYDRATE\EPINEPHRINE\EPINEPHRINE BITARTRATE\LIDOCAINE\LIDOCAINE HYDROCHLORIDE\LIDOCAINE
     Indication: Muscle strain
     Dosage: UNK, GRUNENTHAL LIMITED, PATCHES
     Route: 061
     Dates: start: 20230721, end: 20230722
  3. LIDOCAINE HYDROCHLORIDE [Suspect]
     Active Substance: DEXTROSE MONOHYDRATE\EPINEPHRINE\EPINEPHRINE BITARTRATE\LIDOCAINE\LIDOCAINE HYDROCHLORIDE\LIDOCAINE
     Indication: Muscle spasms
     Route: 065
  4. DULOXETINE [Concomitant]
     Active Substance: DULOXETINE
     Indication: Anxiety
     Dosage: 1 DOSAGE FORMS DAILY; UNK, 1 DOSAGE FORM, 1/DAY
     Route: 065
     Dates: end: 20230922
  5. IBUPROFEN [Concomitant]
     Active Substance: IBUPROFEN
     Indication: Fibromyalgia
     Dosage: UNK UNK, AS NEEDED,
     Route: 065
  6. ACETAMINOPHEN [Concomitant]
     Active Substance: ACETAMINOPHEN
     Indication: Fibromyalgia
     Dosage: UNK UNK, AS NEEDED
     Route: 065
  7. BECLOMETHASONE DIPROPIONATE [Concomitant]
     Active Substance: BECLOMETHASONE DIPROPIONATE
     Indication: Product used for unknown indication
     Dosage: 4 DOSAGE FORMS DAILY; 2 DOSAGE FORM, 2/DAY
     Route: 065
     Dates: end: 20230922
  8. CHOLECALCIFEROL [Concomitant]
     Active Substance: CHOLECALCIFEROL
     Indication: Product used for unknown indication
     Dosage: 1 DOSAGE FORMS DAILY; 1 DOSAGE FORM, 1/DAY
     Route: 065
     Dates: end: 20230922
  9. INFLUENZA VIRUS VACCINE [Concomitant]
     Active Substance: INFLUENZA VIRUS VACCINE
     Indication: Product used for unknown indication
     Dosage: 1 DOSAGE FORM
     Route: 030
  10. MEBEVERINE [Concomitant]
     Active Substance: MEBEVERINE
     Indication: Product used for unknown indication
     Dosage: 2 DOSAGE FORMS DAILY; 1 DOSAGE FORM, 2/DAY
     Route: 065
     Dates: end: 20230915
  11. OMEPRAZOLE [Concomitant]
     Active Substance: OMEPRAZOLE
     Indication: Product used for unknown indication
     Dosage: 1 DOSAGE FORMS DAILY; 1 DOSAGE FORM, 1/DAY
     Route: 065
     Dates: end: 20230825
  12. OMEPRAZOLE [Concomitant]
     Active Substance: OMEPRAZOLE
     Dosage: 1 DOSAGE FORMS DAILY; 1 DOSAGE FORM, 1/DAY
     Route: 065
     Dates: end: 20230915
  13. ALBUTEROL [Concomitant]
     Active Substance: ALBUTEROL
     Indication: Product used for unknown indication
     Dosage: 8 DOSAGE FORMS DAILY; 2 DOSAGE FORM, 4/DAY
     Route: 065
     Dates: end: 20230922

REACTIONS (5)
  - Hypersensitivity [Unknown]
  - Drug hypersensitivity [Unknown]
  - Application site burn [Recovering/Resolving]
  - Second degree chemical burn of skin [Recovering/Resolving]
  - Back injury [Unknown]

NARRATIVE: CASE EVENT DATE: 20200921
